FAERS Safety Report 20133175 (Version 1)
Quarter: 2021Q4

REPORT INFORMATION
  Report Type: Spontaneous
  Country: CA (occurrence: CA)
  Receive Date: 20211201
  Receipt Date: 20211201
  Transmission Date: 20220303
  Serious: Yes (Life-Threatening, Hospitalization, Other)
  Sender: FDA-Public Use
  Company Number: CA-BRISTOL-MYERS SQUIBB COMPANY-BMS-2021-128508

PATIENT
  Age: 45 Year
  Sex: Female
  Weight: 210 kg

DRUGS (1)
  1. ELIQUIS [Suspect]
     Active Substance: APIXABAN
     Indication: Embolism venous
     Dosage: 5 MILLIGRAM, BID
     Route: 065

REACTIONS (7)
  - Adverse event [Unknown]
  - Hospitalisation [Unknown]
  - Hypoxia [Unknown]
  - Pulmonary embolism [Unknown]
  - Right atrial enlargement [Unknown]
  - Lung opacity [Unknown]
  - Product use issue [Unknown]
